FAERS Safety Report 23915833 (Version 1)
Quarter: 2024Q2

REPORT INFORMATION
  Report Type: Spontaneous
  Country: CA (occurrence: CA)
  Receive Date: 20240529
  Receipt Date: 20240529
  Transmission Date: 20240716
  Serious: Yes (Life-Threatening, Other)
  Sender: FDA-Public Use
  Company Number: CA-BAXTER-2024BAX019065

PATIENT
  Age: 73 Year
  Sex: Male
  Weight: 107 kg

DRUGS (8)
  1. HEPARIN SODIUM [Suspect]
     Active Substance: HEPARIN SODIUM
     Indication: Product used for unknown indication
     Dosage: UNK
     Route: 065
  2. SODIUM CHLORIDE [Suspect]
     Active Substance: SODIUM CHLORIDE
     Indication: Product used for unknown indication
     Dosage: 1 DF, ONCE (DOSAGE FORM: SOLUTION INTRAMUSCULAR) SODIUM CHLORIDE, INJECTION USP
     Route: 042
  3. SODIUM CHLORIDE [Suspect]
     Active Substance: SODIUM CHLORIDE
     Dosage: (DOSAGE FORM: SOLUTION INTRAVENOUS) AT AN UNSPECIFIED DOSE, 1 EVERY 1 DAY (SODIUM CHLORIDE INJECTION
     Route: 042
  4. SODIUM CHLORIDE [Suspect]
     Active Substance: SODIUM CHLORIDE
     Dosage: SODIUM CHLORIDE, INJECTION USP (DOSAGE FORM: SOLUTION INTRAVENOUS) AT AN UNSPECIFIED DOSE AND FREQUE
     Route: 042
  5. WATER FOR INJECTION [Suspect]
     Active Substance: WATER
     Indication: Product used for unknown indication
     Dosage: (DOSAGE FORM: SOLUTION INTRAMUSCULAR) 10 ML, ONCE
     Route: 042
  6. CEFTRIAXONE [Suspect]
     Active Substance: CEFTRIAXONE\CEFTRIAXONE SODIUM
     Indication: Osteomyelitis
     Dosage: 2 G, 1 EVERY 1 DAYS
     Route: 042
  7. CEFTRIAXONE SODIUM [Suspect]
     Active Substance: CEFTRIAXONE SODIUM
     Indication: Osteomyelitis
     Dosage: 2 GRAM, 1 EVERY 1 DAY (DOSAGE FORM: POWDER FOR SOLUTION, INTRAMUSCULAR)
     Route: 042
  8. HEPARIN SODIUM [Suspect]
     Active Substance: HEPARIN SODIUM
     Indication: Product used for unknown indication
     Dosage: 2.0 OTHER, ONCE (DOSAGE FORM: LIQUID INTRAVENOUS) (100 UNIT/ML)
     Route: 042

REACTIONS (5)
  - Blood pressure increased [Recovered/Resolved]
  - Oxygen saturation decreased [Recovered/Resolved]
  - Unresponsive to stimuli [Recovered/Resolved]
  - Heart rate increased [Recovered/Resolved]
  - Dyspnoea [Recovered/Resolved]
